FAERS Safety Report 14991388 (Version 1)
Quarter: 2018Q2

REPORT INFORMATION
  Report Type: Spontaneous
  Country: US (occurrence: US)
  Receive Date: 20180608
  Receipt Date: 20180608
  Transmission Date: 20180711
  Serious: No
  Sender: FDA-Public Use
  Company Number: US-GLAXOSMITHKLINE-US2018101639

PATIENT
  Sex: Male

DRUGS (7)
  1. ALBUTEROL INHALER [Concomitant]
     Active Substance: ALBUTEROL
  2. NASONEX [Concomitant]
     Active Substance: MOMETASONE FUROATE
  3. FLOVENT DISKUS [Suspect]
     Active Substance: FLUTICASONE PROPIONATE
     Indication: ASTHMA
     Dosage: 2 PUFF(S), BID
     Route: 055
     Dates: start: 201706
  4. AZELASTINE NASAL SPRAY [Concomitant]
     Active Substance: AZELASTINE
  5. BUDESONIDE NEBULIZER [Concomitant]
     Active Substance: BUDESONIDE
  6. ALBUTEROL NEBULIZER [Concomitant]
     Active Substance: ALBUTEROL
  7. SINGULAIR [Concomitant]
     Active Substance: MONTELUKAST SODIUM

REACTIONS (5)
  - Psychomotor hyperactivity [Recovered/Resolved]
  - Sensory disturbance [Recovered/Resolved]
  - Heart rate increased [Recovered/Resolved]
  - Pruritus [Recovered/Resolved]
  - Wrong technique in device usage process [Unknown]
